FAERS Safety Report 4330999-3 (Version None)
Quarter: 2004Q1

REPORT INFORMATION
  Report Type: 
  Country: None (occurrence: None)
  Receive Date: 20040331
  Receipt Date: 20040316
  Transmission Date: 20041129
  Serious: Yes (Hospitalization)
  Sender: FDA-Public Use
  Company Number: US_0403101689

PATIENT
  Age: 36 Year
  Sex: Male
  Weight: 87 kg

DRUGS (4)
  1. HUMULIN U [Suspect]
     Indication: DIABETES MELLITUS
  2. HUMULIN N [Suspect]
     Indication: DIABETES MELLITUS
     Dosage: 47 U DAY
  3. HUMULIN R [Suspect]
     Indication: DIABETES MELLITUS
     Dosage: 8 U DAY
  4. INSULI-INSULIN-ANIMAL (UNKNOWN FORMULATION) (INSUL [Suspect]

REACTIONS (3)
  - BIPOLAR DISORDER [None]
  - BLOOD GLUCOSE DECREASED [None]
  - SCHIZOAFFECTIVE DISORDER [None]
